FAERS Safety Report 9135293 (Version 1)
Quarter: 2013Q1

REPORT INFORMATION
  Report Type: Spontaneous
  Country: US (occurrence: US)
  Receive Date: 20130304
  Receipt Date: 20130304
  Transmission Date: 20140127
  Serious: No
  Sender: FDA-Public Use
  Company Number: US-ENDO PHARMACEUTICALS INC.-ENDC20110080

PATIENT
  Sex: Male
  Weight: 108.96 kg

DRUGS (1)
  1. ENDOCET [Suspect]
     Indication: BACK PAIN
     Dosage: 70/2275 MG
     Route: 048

REACTIONS (5)
  - Memory impairment [Unknown]
  - Drug ineffective [Unknown]
  - Tremor [Unknown]
  - Anxiety [Unknown]
  - Feeling jittery [Unknown]
